FAERS Safety Report 18096429 (Version 1)
Quarter: 2020Q3

REPORT INFORMATION
  Report Type: Spontaneous
  Country: IT (occurrence: IT)
  Receive Date: 20200731
  Receipt Date: 20200731
  Transmission Date: 20201103
  Serious: Yes (Hospitalization, Other)
  Sender: FDA-Public Use
  Company Number: IT-ASTELLAS-2020US025337

PATIENT
  Age: 53 Year
  Sex: Male

DRUGS (9)
  1. TACROLIMUS. [Suspect]
     Active Substance: TACROLIMUS
     Dosage: UNK, UNKNOWN FREQ. (INCREASED TO THE ORIGINAL DOSE: TARGET LEVEL 5?7 ?G/L)
     Route: 065
  2. PREDNISONE. [Concomitant]
     Active Substance: PREDNISONE
     Indication: RENAL TRANSPLANT
     Route: 065
  3. TACROLIMUS. [Suspect]
     Active Substance: TACROLIMUS
     Dosage: UNK, UNKNOWN FREQ. (AT HALF DOSES)
     Route: 065
  4. MMF [Concomitant]
     Active Substance: MYCOPHENOLATE MOFETIL
     Route: 065
  5. MMF [Concomitant]
     Active Substance: MYCOPHENOLATE MOFETIL
     Indication: RENAL TRANSPLANT
     Route: 065
  6. MMF [Concomitant]
     Active Substance: MYCOPHENOLATE MOFETIL
     Route: 065
  7. PREDNISONE. [Concomitant]
     Active Substance: PREDNISONE
     Route: 065
  8. TACROLIMUS. [Suspect]
     Active Substance: TACROLIMUS
     Indication: RENAL TRANSPLANT
     Dosage: UNK UNK, UNKNOWN FREQ.
     Route: 065
     Dates: start: 2017
  9. PREDNISONE. [Concomitant]
     Active Substance: PREDNISONE
     Dosage: SLOWLY REDUCED TO 5MG, ONCE DAILY
     Route: 065

REACTIONS (1)
  - COVID-19 pneumonia [Recovered/Resolved]
